FAERS Safety Report 9954235 (Version 1)
Quarter: 2020Q3

REPORT INFORMATION
  Report Type: Report from Study
  Country: KR (occurrence: KR)
  Receive Date: 20140304
  Receipt Date: 20140304
  Transmission Date: 20201104
  Serious: Yes (Hospitalization)
  Sender: FDA-Public Use
  Company Number: PHHY2014KR022236

PATIENT
  Age: 66 Year
  Sex: Male

DRUGS (30)
  1. METOCLOPRAMIDE. [Concomitant]
     Active Substance: METOCLOPRAMIDE
     Dosage: 5 MG, UNK
     Route: 048
     Dates: start: 20130912, end: 20130917
  2. METHYLPHENIDATE HYDROCHLORIDE. [Concomitant]
     Active Substance: METHYLPHENIDATE HYDROCHLORIDE
     Indication: DEPRESSED MOOD
     Dosage: 2.5 MG, UNK
     Route: 048
     Dates: start: 20131114
  3. LAMIVUDINE. [Concomitant]
     Active Substance: LAMIVUDINE
     Indication: HEPATITIS B
     Route: 048
  4. SOLIFENACIN SUCCINATE. [Concomitant]
     Active Substance: SOLIFENACIN SUCCINATE
     Indication: POLLAKIURIA
     Dosage: 5 MG, UNK
     Route: 048
     Dates: start: 20130726
  5. HEPARIN SODIUM. [Concomitant]
     Active Substance: HEPARIN SODIUM
     Dosage: 500 OT, UNK
     Route: 042
     Dates: start: 20130819
  6. MAGNESIUM OXIDE. [Concomitant]
     Active Substance: MAGNESIUM OXIDE
     Indication: CONSTIPATION
     Dosage: 500 MG, UNK
     Route: 048
     Dates: start: 20131027
  7. OXALIPLATIN. [Suspect]
     Active Substance: OXALIPLATIN
     Dosage: 110 MG, BIW
     Route: 042
     Dates: start: 20131223
  8. 5 FLUOROURACIL//FLUOROURACIL [Suspect]
     Active Substance: FLUOROURACIL
     Indication: GASTROOESOPHAGEAL CANCER
     Dosage: 541 MG, BIW
     Route: 042
     Dates: start: 20130719
  9. MEGESTROL [Concomitant]
     Active Substance: MEGESTROL
     Indication: DECREASED APPETITE
     Route: 048
  10. FEROBA?YOU [Concomitant]
     Indication: IRON DEFICIENCY ANAEMIA
     Route: 048
  11. TAMSULOSIN [Concomitant]
     Active Substance: TAMSULOSIN
     Indication: POLLAKIURIA
     Dosage: 0.2 MG, UNK
     Route: 048
     Dates: start: 20130730
  12. FOLINIC ACID [Suspect]
     Active Substance: LEUCOVORIN
     Indication: GASTROOESOPHAGEAL CANCER
     Dosage: 676 MG, BIW
     Route: 042
     Dates: start: 20130719
  13. METOCLOPRAMIDE. [Concomitant]
     Active Substance: METOCLOPRAMIDE
     Indication: PREMEDICATION
     Dosage: 5 MG, UNK
     Route: 048
     Dates: start: 20130719
  14. METOCLOPRAMIDE. [Concomitant]
     Active Substance: METOCLOPRAMIDE
     Indication: NAUSEA
     Dosage: 5 MG, UNK
     Route: 048
     Dates: start: 20130822, end: 20130827
  15. APREPITANT. [Concomitant]
     Active Substance: APREPITANT
     Indication: PREMEDICATION
     Dosage: 125 MG, UNK
     Route: 048
     Dates: start: 20130802
  16. SERTRALINE [Concomitant]
     Active Substance: SERTRALINE HYDROCHLORIDE
     Indication: DEPRESSED MOOD
     Dosage: 25 MG, UNK
     Route: 048
     Dates: start: 20131118
  17. FOLINIC ACID [Suspect]
     Active Substance: LEUCOVORIN
     Dosage: 676 MG, BIW
     Route: 042
     Dates: start: 20131223
  18. DARBEPOETIN ALFA [Concomitant]
     Active Substance: DARBEPOETIN ALFA
     Dosage: 240 UG, UNK
     Route: 058
     Dates: start: 20131111
  19. PALONOSETRON. [Concomitant]
     Active Substance: PALONOSETRON HYDROCHLORIDE
     Indication: PREMEDICATION
     Dosage: 0.125 MG, UNK
     Route: 042
     Dates: start: 20130719
  20. TAMSULOSIN [Concomitant]
     Active Substance: TAMSULOSIN
     Indication: BENIGN PROSTATIC HYPERPLASIA
  21. DALTEPARIN SODIUM [Concomitant]
     Active Substance: DALTEPARIN SODIUM
     Indication: PULMONARY EMBOLISM
     Dosage: 12500 IU, UNK
     Route: 058
     Dates: start: 20131014
  22. DALTEPARIN SODIUM [Concomitant]
     Active Substance: DALTEPARIN SODIUM
     Indication: DEEP VEIN THROMBOSIS
     Dosage: 10000 IU, UNK
     Route: 058
     Dates: start: 20131029
  23. ONARTUZUMAB. [Suspect]
     Active Substance: ONARTUZUMAB
     Indication: GASTROOESOPHAGEAL CANCER
     Dosage: 110 MG, BIW
     Route: 042
     Dates: start: 20130719
  24. ONARTUZUMAB. [Suspect]
     Active Substance: ONARTUZUMAB
     Dosage: 110 MG, BIW
     Route: 042
     Dates: start: 20131223
  25. APREPITANT. [Concomitant]
     Active Substance: APREPITANT
     Indication: NAUSEA
     Dosage: 80 MG, UNK
     Route: 048
     Dates: start: 20130820
  26. DARBEPOETIN ALFA [Concomitant]
     Active Substance: DARBEPOETIN ALFA
     Indication: IRON DEFICIENCY ANAEMIA
     Dosage: 120 UG, UNK
     Route: 042
     Dates: start: 20130801
  27. ETIZOLAM [Concomitant]
     Active Substance: ETIZOLAM
     Indication: DEPRESSED MOOD
     Dosage: 0.25 MG, UNK
     Route: 048
     Dates: start: 20131114
  28. OXALIPLATIN. [Suspect]
     Active Substance: OXALIPLATIN
     Indication: GASTROOESOPHAGEAL CANCER
     Dosage: 110 MG, BIW
     Route: 042
     Dates: start: 20130719
  29. 5 FLUOROURACIL//FLUOROURACIL [Suspect]
     Active Substance: FLUOROURACIL
     Dosage: 541 MG, BIW
     Route: 042
     Dates: start: 20131223
  30. PANTOPRAZOLE [Concomitant]
     Active Substance: PANTOPRAZOLE
     Indication: DYSPEPSIA
     Dosage: 40 MG, UNK
     Route: 048
     Dates: start: 20131019

REACTIONS (7)
  - Asthenia [Recovered/Resolved]
  - Decreased appetite [Unknown]
  - Urinary tract infection [Recovered/Resolved]
  - Pneumonia [Recovered/Resolved]
  - Anaemia [Recovered/Resolved]
  - Obstruction gastric [Recovered/Resolved]
  - Dyspnoea exertional [Recovered/Resolved]

NARRATIVE: CASE EVENT DATE: 20131230
